FAERS Safety Report 9204054 (Version 1)
Quarter: 2013Q1

REPORT INFORMATION
  Report Type: Spontaneous
  Country: US (occurrence: None)
  Receive Date: 20130329
  Receipt Date: 20130329
  Transmission Date: 20140127
  Serious: No
  Sender: FDA-Public Use
  Company Number: None

PATIENT
  Age: 62 Year
  Sex: Male

DRUGS (1)
  1. STIVARGA 40 MG TABS [Suspect]
     Indication: NEOPLASM MALIGNANT
     Dosage: 3 TABS DAILY
     Route: 048
     Dates: start: 20130125, end: 20130328

REACTIONS (4)
  - Nausea [None]
  - Asthenia [None]
  - Decreased appetite [None]
  - Dyspnoea [None]
